FAERS Safety Report 9549948 (Version 1)
Quarter: 2013Q3

REPORT INFORMATION
  Report Type: Report from Study
  Country: BR (occurrence: BR)
  Receive Date: 20130924
  Receipt Date: 20130924
  Transmission Date: 20140515
  Serious: Yes (Other)
  Sender: FDA-Public Use
  Company Number: ALCN2013BR001853

PATIENT
  Age: 56 Year
  Sex: Female

DRUGS (5)
  1. TRAVATAN [Suspect]
     Route: 047
  2. TIMOLOL MALEATE [Suspect]
     Route: 047
  3. RANITIDINA [Concomitant]
     Route: 048
  4. BUSCOPAN [Concomitant]
     Route: 048
  5. TRUSOPT [Concomitant]
     Route: 047

REACTIONS (12)
  - Blindness [Recovering/Resolving]
  - Arthritis [Recovering/Resolving]
  - Osteoarthritis [Recovering/Resolving]
  - Osteoporosis [Recovering/Resolving]
  - Lordosis [Recovering/Resolving]
  - Spinal disorder [Recovering/Resolving]
  - Exostosis [Recovering/Resolving]
  - Poor peripheral circulation [Recovering/Resolving]
  - Hormone level abnormal [Recovering/Resolving]
  - Bladder prolapse [Recovering/Resolving]
  - Abdominal pain [Recovering/Resolving]
  - Hysterectomy [Recovered/Resolved]
